FAERS Safety Report 8401316-4 (Version None)
Quarter: 2012Q2

REPORT INFORMATION
  Report Type: 
  Country: None (occurrence: None)
  Receive Date: 20120601
  Receipt Date: 20120522
  Transmission Date: 20120825
  Serious: Yes (Hospitalization)
  Sender: FDA-Public Use
  Company Number: NL-MPIJNJ-2012-02257

PATIENT

DRUGS (8)
  1. FLUCONAZOLE [Concomitant]
     Indication: PROPHYLAXIS
     Dosage: 200 MG, UNK
     Route: 048
     Dates: start: 20120224, end: 20120328
  2. CLARITHROMYCIN [Concomitant]
     Indication: PROPHYLAXIS
     Dosage: 500 MG, UNK
     Route: 048
     Dates: start: 20120224, end: 20120328
  3. OMEPRAZOLE [Concomitant]
     Indication: PROPHYLAXIS
     Dosage: 40 MG, UNK
     Route: 048
     Dates: start: 20120224, end: 20120328
  4. DEXAMETHASONE [Suspect]
     Indication: MULTIPLE MYELOMA
     Dosage: 20 MG, UNK
     Route: 048
     Dates: start: 20120224, end: 20120324
  5. ASCAL                              /00002702/ [Concomitant]
     Dosage: 100 MG, UNK
     Route: 048
     Dates: start: 20120224, end: 20120328
  6. VELCADE [Suspect]
     Indication: MULTIPLE MYELOMA
     Dosage: 1.6 MG/M2, UNK
     Route: 042
     Dates: start: 20120224, end: 20120323
  7. REVLIMID [Suspect]
     Indication: MULTIPLE MYELOMA
     Dosage: 10 MG, UNK
     Route: 048
     Dates: start: 20120224, end: 20120329
  8. VALACICLOVIR [Concomitant]
     Dosage: 500 MG, UNK
     Route: 048
     Dates: start: 20120224, end: 20120328

REACTIONS (1)
  - PATHOLOGICAL FRACTURE [None]
